FAERS Safety Report 7950486-0 (Version None)
Quarter: 2011Q4

REPORT INFORMATION
  Report Type: 
  Country: None (occurrence: None)
  Receive Date: 20111130
  Receipt Date: 20111128
  Transmission Date: 20120403
  Serious: Yes (Death)
  Sender: FDA-Public Use
  Company Number: JP-B.I. PHARMACEUTICALS,INC./RIDGEFIELD-2011-BP-26914NB

PATIENT
  Age: 60 Year
  Sex: Female
  Weight: 47.9 kg

DRUGS (5)
  1. PRADAXA [Suspect]
     Indication: CEREBROVASCULAR ACCIDENT PROPHYLAXIS
     Dosage: 300 MG
     Route: 048
     Dates: start: 20110810, end: 20111016
  2. DIGOXIN [Concomitant]
     Dosage: 2.5 MG
     Route: 048
  3. PRADAXA [Suspect]
     Dosage: 220 MG
     Route: 048
     Dates: start: 20111017
  4. VERAPAMIL HCL [Concomitant]
     Route: 048
  5. TAMBOCOR [Suspect]
     Indication: HYPERTROPHIC CARDIOMYOPATHY
     Dosage: 100 MG
     Route: 048

REACTIONS (1)
  - DEATH [None]
